FAERS Safety Report 24262657 (Version 1)
Quarter: 2024Q3

REPORT INFORMATION
  Report Type: Spontaneous
  Country: PA (occurrence: PA)
  Receive Date: 20240829
  Receipt Date: 20240829
  Transmission Date: 20241016
  Serious: No
  Sender: PFIZER
  Company Number: PA-PFIZER INC-202400190539

PATIENT
  Age: 13 Year
  Sex: Male

DRUGS (1)
  1. GENOTROPIN [Suspect]
     Active Substance: SOMATROPIN
     Dosage: UNK

REACTIONS (3)
  - Device malfunction [Unknown]
  - Device occlusion [Unknown]
  - Device breakage [Unknown]

NARRATIVE: CASE EVENT DATE: 20240607
